FAERS Safety Report 12452700 (Version 10)
Quarter: 2017Q1

REPORT INFORMATION
  Report Type: Report from Study
  Country: US (occurrence: US)
  Receive Date: 20160609
  Receipt Date: 20170123
  Transmission Date: 20170428
  Serious: Yes (Other)
  Sender: FDA-Public Use
  Company Number: US-BAYER-2016-101311

PATIENT
  Age: 59 Year
  Sex: Male
  Weight: 96.15 kg

DRUGS (8)
  1. ADEMPAS [Suspect]
     Active Substance: RIOCIGUAT
     Indication: PULMONARY ARTERIAL HYPERTENSION
     Dosage: 2.5 MG, TID
     Route: 048
  2. UPTRAVI [Suspect]
     Active Substance: SELEXIPAG
     Dosage: 1000 ?G, UNK
  3. COUMADIN [Concomitant]
     Active Substance: WARFARIN SODIUM
     Dosage: UNK
  4. ADEMPAS [Suspect]
     Active Substance: RIOCIGUAT
     Indication: PULMONARY ARTERIAL HYPERTENSION
     Dosage: 2.5 MG, TID
     Route: 048
     Dates: start: 20150205
  5. ADEMPAS [Suspect]
     Active Substance: RIOCIGUAT
     Indication: PULMONARY ARTERIAL HYPERTENSION
     Dosage: 2.5 MG, TID
     Route: 048
  6. ADEMPAS [Suspect]
     Active Substance: RIOCIGUAT
     Indication: PULMONARY ARTERIAL HYPERTENSION
     Dosage: UNK
     Dates: start: 20150205
  7. UPTRAVI [Suspect]
     Active Substance: SELEXIPAG
     Dosage: 1200 ?G, UNK
  8. OPSUMIT [Concomitant]
     Active Substance: MACITENTAN

REACTIONS (26)
  - Diarrhoea [Not Recovered/Not Resolved]
  - Headache [None]
  - Myalgia [None]
  - Pain in extremity [Not Recovered/Not Resolved]
  - Lethargy [Unknown]
  - Abdominal pain lower [None]
  - Hypotension [Unknown]
  - Diarrhoea [None]
  - Flatulence [None]
  - Dizziness [None]
  - Dysphonia [Unknown]
  - Arthralgia [None]
  - Presyncope [None]
  - Asthenia [Unknown]
  - Dehydration [Unknown]
  - Lethargy [None]
  - Malaise [None]
  - Dyspepsia [None]
  - Toothache [None]
  - Mental disorder [Unknown]
  - Pain in jaw [None]
  - Pain in jaw [Not Recovered/Not Resolved]
  - Joint stiffness [None]
  - Gastrointestinal disorder [None]
  - Discomfort [None]
  - Fatigue [Unknown]
